FAERS Safety Report 8536498-7 (Version None)
Quarter: 2012Q3

REPORT INFORMATION
  Report Type: 
  Country: None (occurrence: None)
  Receive Date: 20120725
  Receipt Date: 20120720
  Transmission Date: 20120928
  Serious: Yes (Death, Life-Threatening, Hospitalization, Other)
  Sender: FDA-Public Use
  Company Number: PHHO2010CH07980

PATIENT
  Sex: Male
  Weight: 82 kg

DRUGS (9)
  1. GILENYA [Suspect]
     Indication: MULTIPLE SCLEROSIS
     Dosage: 1.25 MG, UNK
     Route: 048
     Dates: start: 20100614, end: 20120612
  2. ACETAMINOPHEN [Concomitant]
     Indication: HEADACHE
     Dosage: 1 G, QID
     Route: 048
     Dates: start: 20120601
  3. TRANSIPEG [Concomitant]
  4. SPASMO-URGENIN [Concomitant]
     Dosage: 1 MG, QD
     Route: 048
     Dates: start: 20100325
  5. ACIDUM FOLICUM [Concomitant]
     Dosage: 1 MG, QD
     Route: 048
     Dates: start: 20100701
  6. NORVASC [Concomitant]
     Indication: HYPERTENSION
     Dosage: 5 MG, QD
     Route: 048
     Dates: start: 20110302
  7. ASPIRIN [Concomitant]
     Dosage: UNK
     Dates: start: 20000225, end: 20120612
  8. NOVALGIN [Concomitant]
     Indication: HEADACHE
     Dosage: 1 G, QID
     Route: 048
     Dates: start: 20120601
  9. CALCIMAGON [Concomitant]
     Dosage: 1 G, QD
     Route: 048
     Dates: start: 20070701

REACTIONS (8)
  - BASAL CELL CARCINOMA [None]
  - METASTASES TO BONE [None]
  - METASTASES TO LIVER [None]
  - ACTINIC KERATOSIS [None]
  - METASTASES TO KIDNEY [None]
  - LUNG NEOPLASM MALIGNANT [None]
  - METASTASES TO CENTRAL NERVOUS SYSTEM [None]
  - SKIN CANCER [None]
